FAERS Safety Report 6376994-4 (Version None)
Quarter: 2009Q3

REPORT INFORMATION
  Report Type: 
  Country: None (occurrence: None)
  Receive Date: 20090925
  Receipt Date: 20090920
  Transmission Date: 20100115
  Serious: Yes (Hospitalization)
  Sender: FDA-Public Use
  Company Number: VN-B.I. PHARMACEUTICALS,INC./RIDGEFIELD-2009-SG-00519SG

PATIENT
  Age: 5 Decade
  Sex: Female

DRUGS (3)
  1. AGGRENOX [Suspect]
     Indication: ISCHAEMIC STROKE
     Dosage: 200MG DP-ER + 25 MG ASA PER CAPSULE; 1 CAPSULE BID
     Route: 048
     Dates: end: 20090920
  2. AGGRENOX [Suspect]
     Indication: TRANSIENT ISCHAEMIC ATTACK
  3. RENITEC [Suspect]
     Indication: HYPERTENSION
     Route: 048
     Dates: end: 20090920

REACTIONS (4)
  - DYSPHONIA [None]
  - EYELID OEDEMA [None]
  - FACE OEDEMA [None]
  - RASH [None]
